FAERS Safety Report 4437792-1 (Version None)
Quarter: 2004Q3

REPORT INFORMATION
  Report Type: 
  Country: None (occurrence: None)
  Receive Date: 20040831
  Receipt Date: 20040825
  Transmission Date: 20050211
  Serious: Yes (Other)
  Sender: FDA-Public Use
  Company Number: PHEH2004US09257

PATIENT
  Age: 19 Year
  Sex: Male

DRUGS (2)
  1. CLOZARIL [Suspect]
     Indication: AFFECTIVE DISORDER
     Dosage: 125 MG, QD
     Route: 048
  2. ACCUTANE [Concomitant]
     Indication: ACNE

REACTIONS (1)
  - HYPERKALAEMIA [None]
